FAERS Safety Report 26021612 (Version 1)
Quarter: 2025Q4

REPORT INFORMATION
  Report Type: Spontaneous
  Country: GB (occurrence: GB)
  Receive Date: 20251110
  Receipt Date: 20251110
  Transmission Date: 20260118
  Serious: Yes (Disabling, Other)
  Sender: ABBVIE
  Company Number: None

PATIENT
  Age: 43 Year
  Sex: Female
  Weight: 65 kg

DRUGS (1)
  1. BOTOX [Suspect]
     Active Substance: ONABOTULINUMTOXINA
     Indication: Facial cosmetic procedure
     Dosage: TIME INTERVAL: AS NECESSARY: 30 UNITS
     Route: 065
     Dates: start: 20251010, end: 20251010

REACTIONS (16)
  - Arthralgia [Not Recovered/Not Resolved]
  - Chest pain [Recovered/Resolved]
  - Anxiety [Recovering/Resolving]
  - Brain fog [Recovering/Resolving]
  - Derealisation [Recovering/Resolving]
  - Dyspnoea [Not Recovered/Not Resolved]
  - Dizziness [Recovered/Resolved]
  - Arthralgia [Not Recovered/Not Resolved]
  - Headache [Recovering/Resolving]
  - Paraesthesia [Recovered/Resolved]
  - Night sweats [Recovered/Resolved]
  - Medication error [Unknown]
  - Fatigue [Recovering/Resolving]
  - Neuralgia [Not Recovered/Not Resolved]
  - Bradyphrenia [Recovering/Resolving]
  - Muscular weakness [Recovering/Resolving]

NARRATIVE: CASE EVENT DATE: 20250101
